FAERS Safety Report 18933662 (Version 2)
Quarter: 2021Q1

REPORT INFORMATION
  Report Type: Spontaneous
  Country: US (occurrence: US)
  Receive Date: 20210224
  Receipt Date: 20210314
  Transmission Date: 20210420
  Serious: No
  Sender: FDA-Public Use
  Company Number: US-AIMMUNE THERAPEUTICS, INC.-2021AIMT00075

PATIENT

DRUGS (3)
  1. PALFORZIA [Suspect]
     Active Substance: PEANUT
     Dosage: 3 MG, 1X/DAY
     Route: 048
     Dates: start: 20210214, end: 20210216
  2. PALFORZIA [Suspect]
     Active Substance: PEANUT
     Dosage: 6 MG, 1X/DAY
     Route: 048
     Dates: start: 20210209, end: 20210213
  3. PALFORZIA [Suspect]
     Active Substance: PEANUT
     Indication: FOOD ALLERGY
     Dosage: 3 MG, 1X/DAY
     Route: 048
     Dates: start: 20210126, end: 20210208

REACTIONS (6)
  - Nausea [Unknown]
  - Vomiting [Recovered/Resolved]
  - Pain [Unknown]
  - Nausea [Unknown]
  - Urticaria [Recovered/Resolved]
  - Abdominal pain upper [Unknown]

NARRATIVE: CASE EVENT DATE: 202102
